FAERS Safety Report 21101467 (Version 2)
Quarter: 2022Q4

REPORT INFORMATION
  Report Type: Spontaneous
  Country: US (occurrence: US)
  Receive Date: 20220719
  Receipt Date: 20221006
  Transmission Date: 20230112
  Serious: Yes (Life-Threatening, Hospitalization, Other)
  Sender: FDA-Public Use
  Company Number: US-BRISTOL-MYERS SQUIBB COMPANY-2022-076240

PATIENT
  Age: 77 Year
  Sex: Male

DRUGS (19)
  1. ORENCIA [Suspect]
     Active Substance: ABATACEPT
     Indication: Rheumatoid arthritis
     Route: 058
     Dates: start: 20220615, end: 20220802
  2. PREDNISONE [Concomitant]
     Active Substance: PREDNISONE
     Indication: Arthralgia
     Route: 048
     Dates: start: 20220624, end: 20220710
  3. LEFLUNOMIDE [Concomitant]
     Active Substance: LEFLUNOMIDE
     Indication: Rheumatoid arthritis
     Route: 048
     Dates: start: 20211008
  4. LEVALBUTEROL [Concomitant]
     Active Substance: LEVALBUTEROL
     Indication: Dyspnoea
     Dosage: DOSE: 45 MCG
     Dates: start: 20211008
  5. BEVESPI AEROSPHERE [Concomitant]
     Active Substance: FORMOTEROL FUMARATE\GLYCOPYRROLATE
     Indication: Chronic obstructive pulmonary disease
     Dosage: DOSE: 4-4.5 MCG
     Route: 048
     Dates: start: 20211008
  6. AMLODIPINE [Concomitant]
     Active Substance: AMLODIPINE BESYLATE
     Indication: Hypertension
     Route: 048
     Dates: start: 20220808
  7. FLUOXETINE [Concomitant]
     Active Substance: FLUOXETINE HYDROCHLORIDE
     Indication: Anxiety
     Route: 048
     Dates: start: 20211008
  8. GABAPENTIN [Concomitant]
     Active Substance: GABAPENTIN
     Indication: Neuralgia
     Dates: start: 20211008
  9. LOSARTAN [Concomitant]
     Active Substance: LOSARTAN
     Indication: Hypertension
     Route: 048
  10. MONTELUKAST [Concomitant]
     Active Substance: MONTELUKAST SODIUM
     Indication: Hypersensitivity
     Dates: start: 20211008
  11. OMEPRAZOLE [Concomitant]
     Active Substance: OMEPRAZOLE
     Route: 048
  12. TORSEMIDE [Concomitant]
     Active Substance: TORSEMIDE
     Route: 048
  13. MINERALS\VITAMINS [Concomitant]
     Active Substance: MINERALS\VITAMINS
     Route: 048
  14. ASPIRIN [Concomitant]
     Active Substance: ASPIRIN
     Dosage: LOW DOSE ASPRIN
     Route: 048
  15. MUCINEX [Concomitant]
     Active Substance: GUAIFENESIN
  16. BENZONATATE [Concomitant]
     Active Substance: BENZONATATE
     Route: 048
  17. PILOCARPINE HYDROCHLORIDE [Concomitant]
     Active Substance: PILOCARPINE HYDROCHLORIDE
     Route: 048
  18. FLUTICASONE PROPIONATE [Concomitant]
     Active Substance: FLUTICASONE PROPIONATE
     Dosage: DOSE: 50 MCG
  19. BIOTENE DRY MOUTH [SODIUM FLUOROPHOSPHATE] [Concomitant]
     Route: 048

REACTIONS (5)
  - Joint swelling [Unknown]
  - Arthralgia [Unknown]
  - Rheumatoid arthritis [Unknown]
  - Urinary tract infection [Unknown]
  - Sepsis [Unknown]

NARRATIVE: CASE EVENT DATE: 20220601
